FAERS Safety Report 7371795-2 (Version None)
Quarter: 2011Q1

REPORT INFORMATION
  Report Type: 
  Country: None (occurrence: None)
  Receive Date: 20110324
  Receipt Date: 20110316
  Transmission Date: 20110831
  Serious: Yes (Other)
  Sender: FDA-Public Use
  Company Number: CA-ROCHE-765877

PATIENT
  Sex: Female

DRUGS (4)
  1. IRINOTECAN HYDROCHLORIDE [Concomitant]
  2. FLUOROURACIL [Concomitant]
  3. LEUCOVORIN [Concomitant]
  4. BEVACIZUMAB [Suspect]
     Indication: GASTROINTESTINAL CARCINOMA
     Route: 042
     Dates: start: 20091022, end: 20110303

REACTIONS (3)
  - HYPOTENSION [None]
  - NEOPLASM PROGRESSION [None]
  - RASH [None]
